FAERS Safety Report 7071239-4 (Version None)
Quarter: 2010Q4

REPORT INFORMATION
  Report Type: 
  Country: None (occurrence: None)
  Receive Date: 20101029
  Receipt Date: 20101018
  Transmission Date: 20110411
  Serious: Yes (Other)
  Sender: FDA-Public Use
  Company Number: US-ACTELION-A-NJ2009-24269

PATIENT
  Sex: Male

DRUGS (4)
  1. BOSENTAN TABLET 125 MG US [Suspect]
     Indication: PULMONARY ARTERIAL HYPERTENSION
     Dosage: 125 MG, BID
     Route: 048
     Dates: start: 20101005, end: 20101008
  2. BOSENTAN TABLET 125 MG US [Suspect]
     Dosage: UNK
     Route: 048
     Dates: start: 20090130, end: 20101004
  3. BOSENTAN TABLET 125 MG US [Suspect]
     Dosage: 62.5 MG, BID
     Route: 048
  4. WARFARIN SODIUM [Concomitant]

REACTIONS (3)
  - ABDOMINAL DISCOMFORT [None]
  - DECREASED APPETITE [None]
  - NAUSEA [None]
